FAERS Safety Report 6074312-2 (Version None)
Quarter: 2009Q1

REPORT INFORMATION
  Report Type: 
  Country: None (occurrence: None)
  Receive Date: 20090211
  Receipt Date: 20090203
  Transmission Date: 20090719
  Serious: Yes (Death, Disabling, Other)
  Sender: FDA-Public Use
  Company Number: AT-B.I. PHARMACEUTICALS,INC./RIDGEFIELD-2009-DE-00933GD

PATIENT
  Age: 54 Year
  Sex: Male
  Weight: 86 kg

DRUGS (3)
  1. CATAPRESAN [Suspect]
     Indication: METASTATIC PAIN
     Dosage: 6 MCG/ML AT A INFUSION RATE OF 2 ML/HOUR
     Route: 008
  2. ALODAN [Suspect]
     Indication: METASTATIC PAIN
     Dosage: 5 MG/ML AT A INFUSION RATE OF 2 ML/HOUR
     Route: 008
  3. KETAMIN-S [Suspect]
     Indication: METASTATIC PAIN
     Dosage: 0.1 MG/ML AT A INFUSION RATE OF 2 ML/HOUR
     Route: 008

REACTIONS (4)
  - DEATH [None]
  - FAECAL INCONTINENCE [None]
  - PARAESTHESIA [None]
  - PARAPARESIS [None]
